FAERS Safety Report 4934234-4 (Version None)
Quarter: 2006Q1

REPORT INFORMATION
  Report Type: 
  Country: None (occurrence: None)
  Receive Date: 20060307
  Receipt Date: 20060301
  Transmission Date: 20060701
  Serious: Yes (Hospitalization)
  Sender: FDA-Public Use
  Company Number: GB-AVENTIS-200611927GDDC

PATIENT
  Age: 78 Year
  Sex: Female

DRUGS (1)
  1. GLIBENCLAMIDE [Suspect]
     Indication: DIABETES MELLITUS
     Route: 048
     Dates: end: 20060207

REACTIONS (4)
  - CEREBRAL DISORDER [None]
  - CONFUSIONAL STATE [None]
  - HYPOGLYCAEMIA [None]
  - INJURY [None]
